FAERS Safety Report 9397251 (Version 1)
Quarter: 2013Q3

REPORT INFORMATION
  Report Type: Spontaneous
  Country: AU (occurrence: AU)
  Receive Date: 20130712
  Receipt Date: 20130712
  Transmission Date: 20140515
  Serious: Yes (Life-Threatening, Hospitalization, Other)
  Sender: FDA-Public Use
  Company Number: AU-009507513-1307AUS004760

PATIENT
  Age: 60 Year
  Sex: Male

DRUGS (3)
  1. RIBAVIRIN [Suspect]
     Dosage: 600 MG, BID
     Route: 048
     Dates: start: 20130327, end: 20130522
  2. INTERFERON (UNSPECIFIED) [Suspect]
     Dosage: 180 MICROGRAM, QW
     Route: 058
     Dates: start: 20130327, end: 20130522
  3. TELAPREVIR [Suspect]
     Dosage: 750 MG, TID
     Route: 048
     Dates: start: 20130327, end: 20130522

REACTIONS (1)
  - Drug reaction with eosinophilia and systemic symptoms [Recovering/Resolving]
